FAERS Safety Report 23228405 (Version 1)
Quarter: 2023Q4

REPORT INFORMATION
  Report Type: Spontaneous
  Country: US (occurrence: US)
  Receive Date: 20231125
  Receipt Date: 20231125
  Transmission Date: 20240110
  Serious: No
  Sender: FDA-Public Use
  Company Number: US-BAYER-2023A167684

PATIENT
  Age: 57 Year
  Sex: Male

DRUGS (1)
  1. LOTRIMIN ULTRA ATHLETES FOOT [Suspect]
     Active Substance: BUTENAFINE HYDROCHLORIDE
     Indication: Therapeutic skin care topical
     Route: 061

REACTIONS (3)
  - Incorrect product administration duration [Unknown]
  - Application site discomfort [Unknown]
  - Therapeutic product effect incomplete [Unknown]
